FAERS Safety Report 15103105 (Version 1)
Quarter: 2018Q3

REPORT INFORMATION
  Report Type: Spontaneous
  Country: DE (occurrence: DE)
  Receive Date: 20180703
  Receipt Date: 20180703
  Transmission Date: 20181010
  Serious: Yes (Other)
  Sender: FDA-Public Use
  Company Number: DE-BRISTOL-MYERS SQUIBB COMPANY-BMS-2018-059784

PATIENT
  Age: 82 Year
  Sex: Male

DRUGS (1)
  1. ELIQUIS [Suspect]
     Active Substance: APIXABAN
     Indication: STENT PLACEMENT
     Dosage: 2.5 MG, UNK
     Route: 048
     Dates: start: 20180515, end: 20180611

REACTIONS (2)
  - Product use in unapproved indication [Unknown]
  - Eye haemangioma [Recovered/Resolved]

NARRATIVE: CASE EVENT DATE: 2018
